FAERS Safety Report 17964538 (Version 1)
Quarter: 2020Q2

REPORT INFORMATION
  Report Type: Report from Study
  Country: US (occurrence: US)
  Receive Date: 20200630
  Receipt Date: 20200630
  Transmission Date: 20200714
  Serious: Yes (Other)
  Sender: FDA-Public Use
  Company Number: US-GILEAD-2020-0445287

PATIENT
  Age: 71 Year
  Sex: Female

DRUGS (2)
  1. IDELALISIB [Suspect]
     Active Substance: IDELALISIB
     Indication: HODGKIN^S DISEASE
     Dosage: 150 MG, BID
     Route: 048
     Dates: start: 20160921
  2. IDELALISIB [Suspect]
     Active Substance: IDELALISIB
     Indication: NON-HODGKIN^S LYMPHOMA

REACTIONS (2)
  - Diverticulitis [Unknown]
  - Intentional product use issue [Recovered/Resolved]
